FAERS Safety Report 9511308 (Version 2)
Quarter: 2014Q1

REPORT INFORMATION
  Report Type: Spontaneous
  Country: US (occurrence: None)
  Receive Date: 20130305
  Receipt Date: 20140306
  Transmission Date: 20141002
  Serious: Yes (Other)
  Sender: FDA-Public Use
  Company Number: 163-21880-12121085

PATIENT
  Age: 52 Year
  Sex: Female

DRUGS (6)
  1. REVLIMID [Suspect]
     Indication: PLASMA CELL MYELOMA
     Route: 048
     Dates: start: 201007
  2. HCTZ (HYDROCHLOROTHIAZIDE) [Concomitant]
  3. LUNESTA (ESZOPICLONE) [Concomitant]
  4. MIRALAX (MACROGOL) [Concomitant]
  5. COMPAZINE (PROCHLORPERAZINE EDISYLATE) [Concomitant]
  6. WELLBUTRIN (BUPROPION HYDROCHLORIDE) [Concomitant]

REACTIONS (6)
  - Syncope [None]
  - Functional gastrointestinal disorder [None]
  - Ligament sprain [None]
  - Dizziness [None]
  - Diarrhoea [None]
  - Abdominal discomfort [None]
